FAERS Safety Report 16995236 (Version 2)
Quarter: 2019Q4

REPORT INFORMATION
  Report Type: Spontaneous
  Country: ES (occurrence: ES)
  Receive Date: 20191105
  Receipt Date: 20191119
  Transmission Date: 20200122
  Serious: Yes (Other)
  Sender: FDA-Public Use
  Company Number: ES-PURDUE-GBR-2019-0072457

PATIENT
  Age: 94 Year
  Sex: Female

DRUGS (9)
  1. PREGABALIN. [Interacting]
     Active Substance: PREGABALIN
     Indication: PAIN
     Dosage: 225 MG, DAILY
     Route: 065
  2. BUPIVACAINE. [Concomitant]
     Active Substance: BUPIVACAINE
     Indication: NERVE BLOCK
  3. DULOXETINE. [Concomitant]
     Active Substance: DULOXETINE
     Indication: ANAESTHESIA
     Dosage: 30 MG, UNK
  4. LIDOCAINE. [Suspect]
     Active Substance: LIDOCAINE
     Indication: PAIN
     Route: 065
  5. EMLA [Concomitant]
     Active Substance: LIDOCAINE\PRILOCAINE
     Indication: ANAESTHESIA
  6. CAPSAICIN. [Concomitant]
     Active Substance: CAPSAICIN
     Indication: ANAESTHESIA
     Dosage: Q12H (EVERY 12 HOURS)
     Route: 065
  7. NON-PMN MORPHINE SULFATE [Suspect]
     Active Substance: MORPHINE SULFATE
     Indication: PAIN
     Dosage: 2.5 MG, UNK
     Route: 065
  8. VALACICLOVIR [Concomitant]
     Active Substance: VALACYCLOVIR HYDROCHLORIDE
     Indication: PRODUCT USED FOR UNKNOWN INDICATION
     Dosage: UNK
     Route: 065
  9. TRIGON                             /00031901/ [Concomitant]
     Active Substance: TRIAMCINOLONE
     Indication: NERVE BLOCK
     Route: 065

REACTIONS (6)
  - Pain [Unknown]
  - Hallucination, visual [Unknown]
  - Drug interaction [Unknown]
  - Contraindicated product administered [Unknown]
  - Therapeutic product effect incomplete [Unknown]
  - Myoclonus [Unknown]
